FAERS Safety Report 6588938-0 (Version None)
Quarter: 2010Q1

REPORT INFORMATION
  Report Type: 
  Country: None (occurrence: None)
  Receive Date: 20100218
  Receipt Date: 20100208
  Transmission Date: 20100710
  Serious: Yes (Other)
  Sender: FDA-Public Use
  Company Number: JP-PFIZER INC-2010018735

PATIENT

DRUGS (4)
  1. SELARA [Suspect]
     Indication: HYPERTENSION
     Dosage: 25 MG, 1X/DAY
     Route: 048
     Dates: start: 20081101, end: 20090801
  2. SELARA [Suspect]
     Dosage: 50 MG, DAILY
     Dates: start: 20090801, end: 20091212
  3. OLMETEC [Concomitant]
     Dosage: UNK
     Route: 048
  4. CARVEDILOL [Concomitant]
     Dosage: UNK
     Route: 048

REACTIONS (1)
  - BLOOD ALKALINE PHOSPHATASE INCREASED [None]
